FAERS Safety Report 20744767 (Version 2)
Quarter: 2022Q2

REPORT INFORMATION
  Report Type: Spontaneous
  Country: TW (occurrence: TW)
  Receive Date: 20220425
  Receipt Date: 20220513
  Transmission Date: 20220721
  Serious: Yes (Hospitalization, Other)
  Sender: FDA-Public Use
  Company Number: TW-MACLEODS PHARMACEUTICALS US LTD-MAC2022035324

PATIENT

DRUGS (2)
  1. METFORMIN [Suspect]
     Active Substance: METFORMIN HYDROCHLORIDE
     Indication: Diabetes mellitus
     Dosage: 1700 MILLIGRAM, QD
     Route: 065
  2. VILDAGLIPTIN [Concomitant]
     Active Substance: VILDAGLIPTIN
     Indication: Diabetes mellitus
     Dosage: 100 MILLIGRAM, QD
     Route: 065

REACTIONS (4)
  - MELAS syndrome [Recovering/Resolving]
  - Agnosia [Recovered/Resolved]
  - Unmasking of previously unidentified disease [Recovering/Resolving]
  - Diarrhoea [Recovering/Resolving]
